FAERS Safety Report 7044456-7 (Version None)
Quarter: 2010Q4

REPORT INFORMATION
  Report Type: 
  Country: None (occurrence: None)
  Receive Date: 20101014
  Receipt Date: 20101004
  Transmission Date: 20110411
  Serious: Yes (Hospitalization)
  Sender: FDA-Public Use
  Company Number: US-US-EMD SERONO, INC.-7020756

PATIENT
  Sex: Female

DRUGS (2)
  1. REBIF [Suspect]
     Indication: MULTIPLE SCLEROSIS
     Route: 058
     Dates: start: 20100730
  2. UNSPECIFIED MEDICATION [Concomitant]
     Indication: MIGRAINE
     Dates: end: 20100101

REACTIONS (4)
  - CENTRAL NERVOUS SYSTEM LESION [None]
  - INJECTION SITE ERYTHEMA [None]
  - MIGRAINE [None]
  - MULTIPLE SCLEROSIS RELAPSE [None]
